FAERS Safety Report 7626295-9 (Version None)
Quarter: 2011Q3

REPORT INFORMATION
  Report Type: 
  Country: None (occurrence: None)
  Receive Date: 20110721
  Receipt Date: 20110712
  Transmission Date: 20111222
  Serious: Yes (Other)
  Sender: FDA-Public Use
  Company Number: PHHY2011US55058

PATIENT
  Sex: Male
  Weight: 113.83 kg

DRUGS (8)
  1. ASPIRIN [Concomitant]
     Dosage: 325 MG, DAILY
     Route: 048
  2. ACTOS [Concomitant]
     Dosage: 150 MG, DAILY
     Route: 048
  3. GLEEVEC [Suspect]
     Dosage: 200 MG, QOD
     Route: 047
  4. LORISTA H (LOSARTAN/HYDROCHLOROTHIAZIDE) [Concomitant]
     Indication: HYPERTENSION
     Dosage: 100/25 MG DAILY
     Route: 048
  5. CARVEDILOL [Concomitant]
     Dosage: 0.5 DF, DAILY
     Route: 048
  6. VITAMIN B-12 [Concomitant]
     Dosage: 1000 UG, DAILY
     Route: 048
  7. GLEEVEC [Suspect]
     Indication: CHRONIC MYELOID LEUKAEMIA
     Dosage: 400 MG, QD
     Route: 048
     Dates: start: 20110522
  8. GLEEVEC [Suspect]
     Dosage: 200 MG, QD
     Route: 047

REACTIONS (9)
  - FLATULENCE [None]
  - FATIGUE [None]
  - ARTHRITIS [None]
  - DRY MOUTH [None]
  - SOMNOLENCE [None]
  - ABDOMINAL PAIN UPPER [None]
  - ABDOMINAL DISCOMFORT [None]
  - DIARRHOEA [None]
  - ARTHRALGIA [None]
